FAERS Safety Report 18212954 (Version 2)
Quarter: 2020Q4

REPORT INFORMATION
  Report Type: Report from Study
  Country: BR (occurrence: BR)
  Receive Date: 20200831
  Receipt Date: 20201206
  Transmission Date: 20210113
  Serious: Yes (Other)
  Sender: FDA-Public Use
  Company Number: NVSC2020BR053908

PATIENT
  Age: 67 Year
  Sex: Female
  Weight: 49 kg

DRUGS (7)
  1. ENTRESTO [Suspect]
     Active Substance: SACUBITRIL\VALSARTAN
     Indication: CARDIAC FAILURE
     Dosage: 1 DF, QD (24/26MG)
     Route: 048
     Dates: start: 20191212
  2. HIDRION [Concomitant]
     Active Substance: FUROSEMIDE\POTASSIUM CHLORIDE
     Indication: HYPERTENSION
     Dosage: 40 MG, Q3W (01 TABLET OF 40 MG)
     Route: 048
     Dates: start: 1999
  3. HIDRION [Concomitant]
     Active Substance: FUROSEMIDE\POTASSIUM CHLORIDE
     Indication: CARDIAC DISORDER
  4. ASPIRIN. [Concomitant]
     Active Substance: ASPIRIN
     Indication: ANTICOAGULANT THERAPY
     Dosage: 100 MG, Q3W (01 TABLET OF 100 MG)
     Route: 048
  5. SINVALIP [Concomitant]
     Indication: PRODUCT USED FOR UNKNOWN INDICATION
     Dosage: UNK
     Route: 065
  6. ENTRESTO [Suspect]
     Active Substance: SACUBITRIL\VALSARTAN
     Dosage: 1 DF, BID (1 TABLET OF 97/103MG, 1 TABLET IN THE MORNING AND  1 AT NIGHT)
     Route: 048
     Dates: start: 2020
  7. ENTRESTO [Suspect]
     Active Substance: SACUBITRIL\VALSARTAN
     Indication: CARDIAC DISORDER
     Dosage: 1 DF, BID (24/26MG)
     Route: 048
     Dates: start: 20200217

REACTIONS (15)
  - Rhinorrhoea [Unknown]
  - Dizziness [Unknown]
  - Anxiety [Recovered/Resolved]
  - Sinusitis [Recovered/Resolved]
  - Angina pectoris [Recovered/Resolved]
  - Anxiety [Unknown]
  - Pyrexia [Unknown]
  - Nervousness [Unknown]
  - Chest pain [Unknown]
  - Inappropriate schedule of product administration [Unknown]
  - Malaise [Recovered/Resolved]
  - Rhinitis [Recovered/Resolved]
  - Dysphonia [Recovered/Resolved]
  - Malaise [Unknown]
  - Dizziness [Recovered/Resolved]

NARRATIVE: CASE EVENT DATE: 20191212
